FAERS Safety Report 11527157 (Version 2)
Quarter: 2015Q3

REPORT INFORMATION
  Report Type: Spontaneous
  Country: BR (occurrence: BR)
  Receive Date: 20150919
  Receipt Date: 20150925
  Transmission Date: 20151125
  Serious: Yes (Other)
  Sender: FDA-Public Use
  Company Number: BR-JNJFOC-20150906502

PATIENT
  Age: 60 Year
  Sex: Female

DRUGS (12)
  1. PARACETAMOL [Suspect]
     Active Substance: ACETAMINOPHEN
     Indication: OSTEOARTHRITIS
     Route: 048
  2. CLOMIPRAMINE [Suspect]
     Active Substance: CLOMIPRAMINE
     Indication: OSTEOARTHRITIS
     Route: 048
  3. PARACETAMOL [Suspect]
     Active Substance: ACETAMINOPHEN
     Indication: FIBROMYALGIA
     Route: 048
  4. PARACETAMOL [Suspect]
     Active Substance: ACETAMINOPHEN
     Indication: FIBROMYALGIA
     Route: 048
  5. CLOMIPRAMINE [Suspect]
     Active Substance: CLOMIPRAMINE
     Indication: FIBROMYALGIA
     Route: 048
  6. PARACETAMOL [Suspect]
     Active Substance: ACETAMINOPHEN
     Indication: OSTEOARTHRITIS
     Route: 048
  7. NIMESULIDE [Suspect]
     Active Substance: NIMESULIDE
     Indication: OSTEOARTHRITIS
     Route: 048
  8. NIMESULIDE [Suspect]
     Active Substance: NIMESULIDE
     Indication: FIBROMYALGIA
     Route: 048
  9. CLOMIPRAMINE [Suspect]
     Active Substance: CLOMIPRAMINE
     Indication: FIBROMYALGIA
     Route: 048
  10. NIMESULIDE [Suspect]
     Active Substance: NIMESULIDE
     Indication: FIBROMYALGIA
     Route: 048
  11. CLOMIPRAMINE [Suspect]
     Active Substance: CLOMIPRAMINE
     Indication: OSTEOARTHRITIS
     Route: 048
  12. NIMESULIDE [Suspect]
     Active Substance: NIMESULIDE
     Indication: OSTEOARTHRITIS
     Route: 048

REACTIONS (1)
  - Erythema [Recovered/Resolved]

NARRATIVE: CASE EVENT DATE: 201109
